FAERS Safety Report 4590009-X (Version None)
Quarter: 2005Q1

REPORT INFORMATION
  Report Type: 
  Country: None (occurrence: None)
  Receive Date: 20050217
  Receipt Date: 20050208
  Transmission Date: 20050727
  Serious: Yes (Hospitalization)
  Sender: FDA-Public Use
  Company Number: MK200408-0138-1

PATIENT
  Age: 11 Year
  Sex: Female

DRUGS (1)
  1. PAMELOR [Suspect]
     Dosage: 25 MG, Q HS
     Route: 048
     Dates: start: 20040802, end: 20040803

REACTIONS (10)
  - AGITATION [None]
  - COMA [None]
  - CONVULSION [None]
  - ENCEPHALOPATHY [None]
  - MEDICATION ERROR [None]
  - OEDEMA [None]
  - PYREXIA [None]
  - SPEECH DISORDER [None]
  - STUPOR [None]
  - VOMITING [None]
